FAERS Safety Report 8816884 (Version 2)
Quarter: 2013Q1

REPORT INFORMATION
  Report Type: Spontaneous
  Country: GB (occurrence: None)
  Receive Date: 20121002
  Receipt Date: 20121113
  Transmission Date: 20140127
  Serious: Yes (Hospitalization, Other)
  Sender: FDA-Public Use
  Company Number: AUR-APL-2012-04162

PATIENT
  Age: 43 Year
  Sex: Female

DRUGS (5)
  1. GABAPENTIN [Suspect]
     Indication: PRODUCT USED FOR UNKNOWN INDICATION
     Route: 048
  2. CITALOPRAM (CITALOPRAM) [Suspect]
     Route: 048
  3. DILTIAZEM HCL [Suspect]
     Route: 048
  4. DIAZEPAM (DIAZEPAM) [Suspect]
     Route: 048
  5. IRBESARTAN [Suspect]

REACTIONS (10)
  - Intentional overdose [None]
  - Hypotension [None]
  - Bradycardia [None]
  - Atrioventricular block complete [None]
  - Renal impairment [None]
  - Ejection fraction decreased [None]
  - Haemofiltration [None]
  - Anuria [None]
  - Pulmonary oedema [None]
  - Drug ineffective [None]
